FAERS Safety Report 25779390 (Version 1)
Quarter: 2025Q3

REPORT INFORMATION
  Report Type: Report from Study
  Country: GB (occurrence: GB)
  Receive Date: 20250909
  Receipt Date: 20250909
  Transmission Date: 20251020
  Serious: Yes (Other)
  Sender: ABBVIE
  Company Number: GB-ABBVIE-6449256

PATIENT
  Age: 30 Year
  Sex: Male

DRUGS (1)
  1. SKYRIZI [Suspect]
     Active Substance: RISANKIZUMAB-RZAA
     Indication: Crohn^s disease
     Route: 058
     Dates: start: 20250808

REACTIONS (5)
  - Anal fistula [Unknown]
  - Abscess rupture [Unknown]
  - Discomfort [Unknown]
  - Pain [Unknown]
  - Fistula discharge [Unknown]

NARRATIVE: CASE EVENT DATE: 20250101
